FAERS Safety Report 9601892 (Version 1)
Quarter: 2013Q4

REPORT INFORMATION
  Report Type: Spontaneous
  Country: US (occurrence: US)
  Receive Date: 20131007
  Receipt Date: 20131007
  Transmission Date: 20140711
  Serious: No
  Sender: FDA-Public Use
  Company Number: US-BAYER-2013-115650

PATIENT
  Age: 35 Year
  Sex: Female

DRUGS (1)
  1. AVELOX I.V. [Suspect]
     Dosage: 400 MG, UNK
     Route: 042

REACTIONS (5)
  - Hypokalaemia [None]
  - Hypotension [None]
  - Confusional state [None]
  - Polyuria [None]
  - Tremor [None]
